FAERS Safety Report 7972607-6 (Version None)
Quarter: 2011Q4

REPORT INFORMATION
  Report Type: 
  Country: None (occurrence: None)
  Receive Date: 20111213
  Receipt Date: 20111202
  Transmission Date: 20120403
  Serious: Yes (Other)
  Sender: FDA-Public Use
  Company Number: US-BAYER-201038659NA

PATIENT
  Age: 29 Year
  Sex: Female
  Weight: 104.31 kg

DRUGS (9)
  1. WELLBUTRIN [Concomitant]
     Indication: ANXIETY
     Dosage: 150 MG, BID
     Route: 048
     Dates: start: 20060301
  2. NEXIUM [Concomitant]
     Indication: GASTROOESOPHAGEAL REFLUX DISEASE
     Dosage: UNK
     Route: 048
     Dates: start: 20060317
  3. MULTI-VITAMIN [Concomitant]
  4. STRATTERA [Concomitant]
     Indication: ATTENTION DEFICIT/HYPERACTIVITY DISORDER
     Dosage: UNK UNK, QD
     Route: 048
     Dates: start: 20060301
  5. YASMIN [Suspect]
     Dosage: UNK
     Route: 048
     Dates: start: 20050101, end: 20060101
  6. IBUPROFEN [Concomitant]
  7. WELLBUTRIN [Concomitant]
     Indication: DEPRESSION
  8. THYROID MEDICATION [Concomitant]
     Route: 048
  9. PRILOSEC [Concomitant]
     Indication: GASTROOESOPHAGEAL REFLUX DISEASE
     Dosage: 20 MG, UNK
     Route: 048
     Dates: start: 20060323

REACTIONS (5)
  - OEDEMA [None]
  - THROMBOPHLEBITIS SUPERFICIAL [None]
  - DEEP VEIN THROMBOSIS [None]
  - THROMBOSIS [None]
  - CHEST PAIN [None]
